FAERS Safety Report 20670085 (Version 1)
Quarter: 2022Q2

REPORT INFORMATION
  Report Type: Spontaneous
  Country: US (occurrence: None)
  Receive Date: 20220401
  Receipt Date: 20220401
  Transmission Date: 20220721
  Serious: Yes (Death)
  Sender: FDA-Public Use
  Company Number: None

PATIENT
  Sex: Female
  Weight: 57.61 kg

DRUGS (19)
  1. AZACITIDINE [Suspect]
     Active Substance: AZACITIDINE
     Indication: Myelodysplastic syndrome
     Dosage: 112MG  QDX1 WEEK SUBCUTANEOUS?
     Route: 058
     Dates: start: 202109, end: 202203
  2. ACYCLOVIR [Concomitant]
     Active Substance: ACYCLOVIR
  3. ATENOLOL [Concomitant]
     Active Substance: ATENOLOL
  4. CALCIUM [Concomitant]
     Active Substance: CALCIUM
  5. CREON [Concomitant]
     Active Substance: PANCRELIPASE AMYLASE\PANCRELIPASE LIPASE\PANCRELIPASE PROTEASE
  6. FLUCONAZOLE [Concomitant]
     Active Substance: FLUCONAZOLE
  7. GABAPENTIN [Concomitant]
     Active Substance: GABAPENTIN
  8. LEVOFLOXACIN [Concomitant]
     Active Substance: LEVOFLOXACIN
  9. LEVOTHYROXINE [Concomitant]
     Active Substance: LEVOTHYROXINE
  10. MAGNESIUM [Concomitant]
     Active Substance: MAGNESIUM
  11. METAMUCIL [Concomitant]
     Active Substance: PLANTAGO SEED
  12. MIRTAZAPINE [Concomitant]
     Active Substance: MIRTAZAPINE
  13. VITAMINS [Concomitant]
     Active Substance: VITAMINS
  14. POTASSIUM [Concomitant]
     Active Substance: POTASSIUM
  15. VITAMINS A [Concomitant]
  16. ASCORBIC ACID [Concomitant]
     Active Substance: ASCORBIC ACID
  17. VITAMINS D3 [Concomitant]
  18. VITAMINS E [Concomitant]
  19. ZINC [Concomitant]
     Active Substance: ZINC

REACTIONS (1)
  - Disease progression [None]
